FAERS Safety Report 23930130 (Version 3)
Quarter: 2024Q3

REPORT INFORMATION
  Report Type: Spontaneous
  Country: JP (occurrence: JP)
  Receive Date: 20240601
  Receipt Date: 20240702
  Transmission Date: 20241017
  Serious: Yes (Hospitalization)
  Sender: JOHNSON AND JOHNSON
  Company Number: JP-JNJFOC-20240573242

PATIENT

DRUGS (4)
  1. OPSUMIT [Suspect]
     Active Substance: MACITENTAN
     Indication: Pulmonary arterial hypertension
     Route: 048
  2. GEMCITABINE [Concomitant]
     Active Substance: GEMCITABINE
     Dosage: DOSE UNKNOWN
  3. ADEMPAS [Concomitant]
     Active Substance: RIOCIGUAT
     Dosage: DOSE UNKNOWN
     Route: 048
  4. TREPROSTINIL [Concomitant]
     Active Substance: TREPROSTINIL

REACTIONS (2)
  - Pulmonary oedema [Recovering/Resolving]
  - Oedema [Recovering/Resolving]
